FAERS Safety Report 4910907-4 (Version None)
Quarter: 2006Q1

REPORT INFORMATION
  Report Type: 
  Country: None (occurrence: None)
  Receive Date: 20060214
  Receipt Date: 20051122
  Transmission Date: 20060701
  Serious: Yes (Hospitalization)
  Sender: FDA-Public Use
  Company Number: HQWYE671722NOV05

PATIENT
  Sex: Female

DRUGS (6)
  1. ENBREL [Suspect]
     Indication: RHEUMATOID ARTHRITIS
     Route: 058
     Dates: start: 20050706, end: 20051104
  2. PREDNISOLONE [Concomitant]
     Dates: start: 20031022
  3. INDOMETHACIN [Concomitant]
     Dates: start: 20031022
  4. ISONIAZID [Concomitant]
     Dates: start: 20050622
  5. VOLTAREN [Concomitant]
     Dates: start: 20031022
  6. AZULENE [Concomitant]
     Dates: start: 20031022

REACTIONS (3)
  - ARTHRALGIA [None]
  - CYST [None]
  - PAIN [None]
